FAERS Safety Report 6855723-1 (Version None)
Quarter: 2010Q3

REPORT INFORMATION
  Report Type: 
  Country: None (occurrence: None)
  Receive Date: 20100719
  Receipt Date: 20090729
  Transmission Date: 20110219
  Serious: No
  Sender: FDA-Public Use
  Company Number: US-KINGPHARMUSA00001-K200900905

PATIENT
  Sex: Female
  Weight: 69.388 kg

DRUGS (19)
  1. LEVOXYL [Suspect]
     Indication: HYPOTHYROIDISM
     Dosage: 125 MCG, QHS
     Route: 048
  2. LEVOXYL [Suspect]
     Indication: GOITRE
     Dosage: 112 MCG, QHS
     Route: 048
  3. LEVOXYL [Suspect]
     Dosage: 100 MCG, QHS
     Route: 048
  4. LEVOXYL [Suspect]
     Dosage: 50 MCG, QHS
     Route: 048
  5. LEVOXYL [Suspect]
     Dosage: 100 MCG, QHS
     Route: 048
  6. LEVOXYL [Suspect]
     Dosage: 125 MCG, QHS
  7. ZETIA [Suspect]
     Indication: BLOOD CHOLESTEROL INCREASED
     Dosage: 10 MG, QD
     Route: 048
  8. PULMICORT [Concomitant]
     Indication: ASTHMA
     Dosage: UNK
  9. NASONEX [Concomitant]
     Indication: ASTHMA
     Dosage: UNK
  10. AZMACORT [Concomitant]
     Indication: ASTHMA
     Dosage: UNK, BID
  11. FLAXSEED OIL [Concomitant]
     Dosage: UNK, BID
  12. DYAZIDE [Concomitant]
     Indication: HYPERTENSION
     Dosage: UNK
  13. CALCIUM [Concomitant]
     Indication: MUSCLE SPASMS
     Dosage: UNK
  14. VITAMIN C [Concomitant]
     Indication: MUSCLE SPASMS
     Dosage: UNK
  15. SELENIUM [Concomitant]
     Dosage: UNK
  16. CLARINEX [Concomitant]
     Indication: ASTHMA
  17. TIAMATINE [Concomitant]
     Indication: BLOOD PRESSURE
  18. ZETIA [Concomitant]
  19. CORTISONE ACETATE [Suspect]
     Dosage: UNK
     Dates: start: 20090824

REACTIONS (20)
  - ADVERSE DRUG REACTION [None]
  - BLOOD THYROID STIMULATING HORMONE DECREASED [None]
  - DIARRHOEA [None]
  - DIZZINESS [None]
  - DYSPHONIA [None]
  - DYSPNOEA [None]
  - FATIGUE [None]
  - FEELING ABNORMAL [None]
  - FEELING COLD [None]
  - FEELING JITTERY [None]
  - HAIR GROWTH ABNORMAL [None]
  - HYPERHIDROSIS [None]
  - HYPOAESTHESIA [None]
  - IRRITABILITY [None]
  - MUSCLE SPASMS [None]
  - NAUSEA [None]
  - PRURITUS [None]
  - THROAT IRRITATION [None]
  - THYROID DISORDER [None]
  - TREMOR [None]
